FAERS Safety Report 14814939 (Version 1)
Quarter: 2018Q2

REPORT INFORMATION
  Report Type: Spontaneous
  Country: US (occurrence: US)
  Receive Date: 20180426
  Receipt Date: 20180426
  Transmission Date: 20180711
  Serious: No
  Sender: FDA-Public Use
  Company Number: US-009507513-1803USA012444

PATIENT
  Age: 22 Year
  Sex: Female
  Weight: 77.1 kg

DRUGS (1)
  1. NEXPLANON [Suspect]
     Active Substance: ETONOGESTREL
     Indication: CONTRACEPTION
     Dosage: 3 YEAR IMPLANT
     Dates: start: 201410, end: 201712

REACTIONS (30)
  - Chest pain [Unknown]
  - Mood swings [Unknown]
  - Fatigue [Unknown]
  - Pharyngitis [Unknown]
  - Contusion [Unknown]
  - Pain [Unknown]
  - Incorrect drug administration duration [Unknown]
  - Peripheral swelling [Unknown]
  - Vasodilatation [Unknown]
  - Goitre [Unknown]
  - Neck mass [Unknown]
  - Breast pain [Unknown]
  - Menstruation irregular [Unknown]
  - Rash pruritic [Recovering/Resolving]
  - Pain in extremity [Unknown]
  - Tremor [Unknown]
  - Hypertension [Unknown]
  - Weight increased [Unknown]
  - Dizziness [Unknown]
  - Back pain [Unknown]
  - Neck pain [Unknown]
  - Pruritus [Recovering/Resolving]
  - Chest pain [Unknown]
  - Ocular hyperaemia [Unknown]
  - Visual impairment [Unknown]
  - Menorrhagia [Unknown]
  - Tremor [Unknown]
  - Dyspnoea [Unknown]
  - Axillary pain [Unknown]
  - Oligomenorrhoea [Unknown]

NARRATIVE: CASE EVENT DATE: 201410
